FAERS Safety Report 6868897-3 (Version None)
Quarter: 2010Q3

REPORT INFORMATION
  Report Type: 
  Country: None (occurrence: None)
  Receive Date: 20100721
  Receipt Date: 20100721
  Transmission Date: 20110219
  Serious: Yes (Hospitalization)
  Sender: FDA-Public Use
  Company Number: None

PATIENT
  Sex: Female
  Weight: 65.3 kg

DRUGS (2)
  1. CARBOPLATIN [Suspect]
     Dosage: 670 MG
     Dates: end: 20100630
  2. TAXOL [Suspect]
     Dosage: 342 MG
     Dates: end: 20100630

REACTIONS (5)
  - DISCOMFORT [None]
  - DIVERTICULITIS [None]
  - NEUTROPENIA [None]
  - PAIN [None]
  - VAGINAL DISCHARGE [None]
